FAERS Safety Report 4754354-7 (Version None)
Quarter: 2005Q3

REPORT INFORMATION
  Report Type: 
  Country: None (occurrence: None)
  Receive Date: 20050829
  Receipt Date: 20050824
  Transmission Date: 20060218
  Serious: Yes (Death)
  Sender: FDA-Public Use
  Company Number: PHBS2005CL12474

PATIENT
  Age: 10 Year
  Sex: Male

DRUGS (1)
  1. TORECAN [Suspect]
     Indication: ABDOMINAL DISCOMFORT

REACTIONS (1)
  - CARDIO-RESPIRATORY ARREST [None]
